FAERS Safety Report 18974069 (Version 2)
Quarter: 2021Q1

REPORT INFORMATION
  Report Type: Spontaneous
  Country: DE (occurrence: DE)
  Receive Date: 20210305
  Receipt Date: 20210315
  Transmission Date: 20210420
  Serious: Yes (Death, Life-Threatening, Hospitalization)
  Sender: FDA-Public Use
  Company Number: NVSC2020DE162679

PATIENT
  Age: 50 Year
  Sex: Male
  Weight: 118 kg

DRUGS (18)
  1. SPIRONOLACTON [Concomitant]
     Active Substance: SPIRONOLACTONE
     Indication: HYPERTENSION
     Dosage: 50 MG, 2X/DAY (1?1?0)
     Route: 065
     Dates: start: 20181107
  2. FOLIC ACID. [Concomitant]
     Active Substance: FOLIC ACID
     Indication: FOLATE DEFICIENCY
     Dosage: 5 MG, 1X/DAY (1?0?0)
     Route: 065
     Dates: start: 20181107
  3. FERRO?SANOL DUODENAL [Concomitant]
     Active Substance: FERROUS GLYCINE SULFATE
     Indication: ANAEMIA
     Dosage: 100 MG
     Route: 065
  4. METHOTREXATE. [Suspect]
     Active Substance: METHOTREXATE
     Indication: PRODUCT USED FOR UNKNOWN INDICATION
     Dosage: UNK
     Route: 065
  5. GUSELKUMAB [Suspect]
     Active Substance: GUSELKUMAB
     Dosage: 200 MG
     Route: 058
     Dates: start: 20181026
  6. RIFAXIMIN. [Concomitant]
     Active Substance: RIFAXIMIN
     Indication: HEPATIC CIRRHOSIS
  7. PANTOPRAZOLE [Concomitant]
     Active Substance: PANTOPRAZOLE
     Indication: DYSPEPSIA
     Dosage: 40 MG
     Route: 065
  8. TAVEGIL [Concomitant]
     Active Substance: CLEMASTINE FUMARATE
     Indication: PRURITUS
     Dosage: 1 MG
     Route: 065
  9. COSENTYX [Suspect]
     Active Substance: SECUKINUMAB
     Indication: PSORIATIC ARTHROPATHY
     Dosage: 300 MG, QMO
     Route: 058
     Dates: start: 20180207, end: 201807
  10. COSENTYX [Suspect]
     Active Substance: SECUKINUMAB
     Dosage: 300 MG, QMO
     Route: 058
     Dates: start: 20180702, end: 20180715
  11. COSENTYX [Suspect]
     Active Substance: SECUKINUMAB
     Dosage: 300 MG (2X150MG), QMO  (EVERY 4 WEEKS)
     Route: 058
     Dates: start: 20180207
  12. EISEN [Concomitant]
     Indication: ANAEMIA
     Dosage: 100 MG, 1X/DAY (1?0?0)
     Route: 065
     Dates: start: 20181107
  13. RIFAXIMIN. [Concomitant]
     Active Substance: RIFAXIMIN
     Indication: NONALCOHOLIC FATTY LIVER DISEASE
     Dosage: 550 MG, 2X/DAY (1?0?1)
     Route: 065
     Dates: start: 20181107
  14. INSULIN [Concomitant]
     Active Substance: INSULIN NOS
     Indication: TYPE 2 DIABETES MELLITUS
     Dosage: UNK
     Route: 058
  15. COSENTYX [Suspect]
     Active Substance: SECUKINUMAB
     Indication: PSORIASIS
     Dosage: 300 MG (2X150 MG), QW FOR 5 WEEKS
     Route: 058
     Dates: start: 20150610, end: 20151201
  16. GUSELKUMAB [Suspect]
     Active Substance: GUSELKUMAB
     Indication: PSORIASIS
     Dosage: 200 MG
     Route: 058
     Dates: start: 20180731
  17. RAMIPRIL. [Concomitant]
     Active Substance: RAMIPRIL
     Indication: HYPERTENSION
     Dosage: 2.5 MG, 1X/DAY (1?0?0)
     Route: 065
     Dates: start: 20181107
  18. BIFITERAL [Concomitant]
     Active Substance: LACTULOSE
     Indication: LIVER DISORDER
     Dosage: 30 ML
     Route: 065

REACTIONS (16)
  - Ketoacidosis [Fatal]
  - Hyponatraemia [Fatal]
  - Megacolon [Fatal]
  - Lactic acidosis [Fatal]
  - Circulatory collapse [Fatal]
  - Dyspnoea [Not Recovered/Not Resolved]
  - Hepatic cirrhosis [Fatal]
  - Somnolence [Fatal]
  - Depression [Unknown]
  - Drug ineffective [Unknown]
  - General physical health deterioration [Fatal]
  - Septic shock [Fatal]
  - Acute abdomen [Fatal]
  - Colitis ischaemic [Fatal]
  - Sepsis [Fatal]
  - Pain [Unknown]

NARRATIVE: CASE EVENT DATE: 2018
